FAERS Safety Report 15155835 (Version 1)
Quarter: 2018Q3

REPORT INFORMATION
  Report Type: Spontaneous
  Country: DE (occurrence: DE)
  Receive Date: 20180717
  Receipt Date: 20180717
  Transmission Date: 20181010
  Serious: Yes (Hospitalization)
  Sender: FDA-Public Use
  Company Number: DE-US WORLDMEDS, LLC-STA_00018262

PATIENT
  Age: 47 Year
  Sex: Male
  Weight: 90 kg

DRUGS (14)
  1. APOMORPHINE HYDROCHLORIDE [Suspect]
     Active Substance: APOMORPHINE HYDROCHLORIDE
     Indication: PARKINSON^S DISEASE
     Dosage: FROM 07.00 AM UNTIL 10.00 PM
     Route: 058
     Dates: start: 200612, end: 20160425
  2. CLOZAPIN 25MG [Concomitant]
     Active Substance: CLOZAPINE
     Indication: PRODUCT USED FOR UNKNOWN INDICATION
     Route: 048
  3. STALEVO 50 [Concomitant]
     Indication: PARKINSON^S DISEASE
     Route: 048
  4. SORMODREN 4MG [Suspect]
     Active Substance: BORNAPRINE HYDROCHLORIDE
     Indication: PARKINSON^S DISEASE
     Dosage: +2X2 DF
     Route: 048
  5. BISOPROLOL 2,5 MG [Concomitant]
     Indication: PRODUCT USED FOR UNKNOWN INDICATION
     Route: 048
  6. VITAMIN B12 [Concomitant]
     Active Substance: CYANOCOBALAMIN
     Indication: PRODUCT USED FOR UNKNOWN INDICATION
     Route: 058
  7. NACOM 200 RET [Concomitant]
     Indication: PARKINSON^S DISEASE
     Route: 048
  8. AZILECT [Concomitant]
     Active Substance: RASAGILINE MESYLATE
     Indication: PARKINSON^S DISEASE
  9. METAMIZOLE 500 [Concomitant]
     Indication: PRODUCT USED FOR UNKNOWN INDICATION
  10. RAMIPRIL 2,5 [Concomitant]
     Indication: PRODUCT USED FOR UNKNOWN INDICATION
     Route: 048
  11. RAMIPRIL COMP.2,5/12,5 [Concomitant]
     Indication: PRODUCT USED FOR UNKNOWN INDICATION
     Route: 048
  12. MADOPAR LT [Concomitant]
     Active Substance: BENSERAZIDE HYDROCHLORIDE\LEVODOPA
     Indication: PARKINSON^S DISEASE
     Route: 048
  13. RIVOTRIL [Concomitant]
     Active Substance: CLONAZEPAM
     Indication: PRODUCT USED FOR UNKNOWN INDICATION
     Route: 048
  14. PK?MERZ [Suspect]
     Active Substance: AMANTADINE
     Indication: PARKINSON^S DISEASE
     Route: 048

REACTIONS (8)
  - Acute psychosis [Recovered/Resolved]
  - Injection site erythema [Recovered/Resolved]
  - Injection site nodule [Not Recovered/Not Resolved]
  - Delusion [Not Recovered/Not Resolved]
  - Injection site necrosis [Recovered/Resolved]
  - Dystonia [Recovered/Resolved]
  - Hyperkinesia [Recovered/Resolved]
  - Nausea [Not Recovered/Not Resolved]

NARRATIVE: CASE EVENT DATE: 20130115
